FAERS Safety Report 9205040 (Version 2)
Quarter: 2013Q2

REPORT INFORMATION
  Report Type: Spontaneous
  Country: US (occurrence: US)
  Receive Date: 20130402
  Receipt Date: 20130624
  Transmission Date: 20140414
  Serious: No
  Sender: FDA-Public Use
  Company Number: US-PFIZER INC-2013101058

PATIENT
  Sex: Female

DRUGS (3)
  1. AZULFIDINE [Suspect]
     Dosage: 500 MG, UNK
  2. PLAQUENIL [Concomitant]
     Dosage: UNK
  3. ORENCIA [Concomitant]
     Dosage: UNK

REACTIONS (2)
  - Abdominal pain upper [Unknown]
  - Abdominal discomfort [Recovered/Resolved]
